FAERS Safety Report 25158328 (Version 1)
Quarter: 2025Q2

REPORT INFORMATION
  Report Type: Spontaneous
  Country: ZA (occurrence: ZA)
  Receive Date: 20250404
  Receipt Date: 20250404
  Transmission Date: 20250717
  Serious: Yes (Death, Hospitalization, Other)
  Sender: MERCK SHARP AND DOHME
  Company Number: ZA-009507513-2254795

PATIENT
  Age: 79 Year
  Sex: Male
  Weight: 78.3 kg

DRUGS (1)
  1. KEYTRUDA [Suspect]
     Active Substance: PEMBROLIZUMAB
     Indication: Renal cell carcinoma
     Dosage: 200 MG IV EVERY 3 WEEKS (Q3W)
     Route: 042
     Dates: start: 20240612, end: 20240727

REACTIONS (8)
  - Malignant neoplasm progression [Fatal]
  - Erythema [Not Recovered/Not Resolved]
  - Dermatitis [Not Recovered/Not Resolved]
  - Mouth ulceration [Not Recovered/Not Resolved]
  - Sarcopenia [Not Recovered/Not Resolved]
  - Chronic gastritis [Not Recovered/Not Resolved]
  - Duodenitis [Not Recovered/Not Resolved]
  - Colorectal adenoma [Not Recovered/Not Resolved]

NARRATIVE: CASE EVENT DATE: 20240814
